FAERS Safety Report 7687244-0 (Version None)
Quarter: 2011Q3

REPORT INFORMATION
  Report Type: 
  Country: None (occurrence: None)
  Receive Date: 20110816
  Receipt Date: 20110803
  Transmission Date: 20111222
  Serious: Yes (Other)
  Sender: FDA-Public Use
  Company Number: US-MYLANLABS-2011S1016090

PATIENT
  Age: 37 Year
  Sex: Female

DRUGS (6)
  1. QUETIAPINE [Concomitant]
     Dosage: AT BEDTIME
     Route: 065
  2. LEVOTHYROXINE SODIUM [Concomitant]
     Indication: HYPOTHYROIDISM
     Route: 065
  3. TOPIRAMATE [Concomitant]
  4. DULOXETIME HYDROCHLORIDE [Interacting]
     Dosage: 120MG DAILY
     Route: 065
  5. BUPROPION HCL [Suspect]
     Dosage: 300MG DAILY
     Route: 065
  6. PREMPRO [Concomitant]

REACTIONS (8)
  - DRUG INTERACTION [None]
  - TACHYCARDIA [None]
  - MIGRAINE [None]
  - VISION BLURRED [None]
  - HOT FLUSH [None]
  - DRUG LEVEL INCREASED [None]
  - SUICIDAL IDEATION [None]
  - AMENORRHOEA [None]
